FAERS Safety Report 10548174 (Version 1)
Quarter: 2014Q4

REPORT INFORMATION
  Report Type: Spontaneous
  Country: US (occurrence: None)
  Receive Date: 20141027
  Receipt Date: 20141027
  Transmission Date: 20150529
  Serious: No
  Sender: FDA-Public Use
  Company Number: None

PATIENT
  Age: 34 Year
  Sex: Male
  Weight: 56.7 kg

DRUGS (2)
  1. DEXTROAMPHETAMINE [Suspect]
     Active Substance: DEXTROAMPHETAMINE
     Indication: ATTENTION DEFICIT/HYPERACTIVITY DISORDER
     Dosage: 1 PILL TWICE DAILY TAKEN BY MOUTH
     Route: 048
     Dates: start: 20141010, end: 20141020
  2. DEXTROAMPHETAMINE [Suspect]
     Active Substance: DEXTROAMPHETAMINE
     Indication: AFFECTIVE DISORDER
     Dosage: 1 PILL TWICE DAILY TAKEN BY MOUTH
     Route: 048
     Dates: start: 20141010, end: 20141020

REACTIONS (12)
  - Fatigue [None]
  - Dry mouth [None]
  - Memory impairment [None]
  - Drug ineffective [None]
  - Irritability [None]
  - Product quality issue [None]
  - Elevated mood [None]
  - Insomnia [None]
  - Dizziness [None]
  - Eye pruritus [None]
  - Distractibility [None]
  - Product substitution issue [None]

NARRATIVE: CASE EVENT DATE: 20141010
